FAERS Safety Report 25368716 (Version 1)
Quarter: 2025Q2

REPORT INFORMATION
  Report Type: Report from Study
  Country: CA (occurrence: CA)
  Receive Date: 20250528
  Receipt Date: 20250528
  Transmission Date: 20250717
  Serious: Yes (Other)
  Sender: ALEXION PHARMACEUTICALS
  Company Number: CA-AstraZeneca-CH-00868131A

PATIENT
  Age: 73 Year
  Weight: 72.4 kg

DRUGS (4)
  1. ACALABRUTINIB [Suspect]
     Active Substance: ACALABRUTINIB
     Indication: Chronic lymphocytic leukaemia
     Dosage: 100 MILLIGRAM, Q12H
  2. ACALABRUTINIB [Suspect]
     Active Substance: ACALABRUTINIB
     Dosage: 100 MILLIGRAM, QD
  3. QUETIAPINE [Concomitant]
     Active Substance: QUETIAPINE
     Route: 065
  4. CLONAZEPAM [Concomitant]
     Active Substance: CLONAZEPAM
     Route: 065

REACTIONS (16)
  - Malignant neoplasm progression [Unknown]
  - Atrial fibrillation [Unknown]
  - Immunosuppression [Unknown]
  - White blood cell count increased [Unknown]
  - Feeling abnormal [Unknown]
  - Drug intolerance [Unknown]
  - Fatigue [Unknown]
  - Haemorrhoids [Unknown]
  - Weight decreased [Unknown]
  - Splenomegaly [Unknown]
  - Cardiovascular disorder [Unknown]
  - Peripheral swelling [Unknown]
  - Haemorrhage [Unknown]
  - Diarrhoea [Unknown]
  - Hypertension [Unknown]
  - Cognitive disorder [Unknown]
